FAERS Safety Report 15657587 (Version 1)
Quarter: 2018Q4

REPORT INFORMATION
  Report Type: Spontaneous
  Country: US (occurrence: US)
  Receive Date: 20181126
  Receipt Date: 20181126
  Transmission Date: 20190205
  Serious: No
  Sender: FDA-Public Use
  Company Number: None

PATIENT
  Age: 67 Year
  Sex: Female
  Weight: 49.5 kg

DRUGS (2)
  1. YUVAFEM [Suspect]
     Active Substance: ESTRADIOL HEMIHYDRATE
     Indication: ATROPHIC VULVOVAGINITIS
     Dosage: ?          QUANTITY:8 VAGINAL TABLET;OTHER FREQUENCY:2XPER WEEK;?
     Route: 067
  2. YUVAFEM [Suspect]
     Active Substance: ESTRADIOL HEMIHYDRATE
     Indication: URINARY TRACT DISORDER
     Dosage: ?          QUANTITY:8 VAGINAL TABLET;OTHER FREQUENCY:2XPER WEEK;?
     Route: 067

REACTIONS (6)
  - Product substitution issue [None]
  - Drug ineffective [None]
  - Device difficult to use [None]
  - Condition aggravated [None]
  - Product solubility abnormal [None]
  - Product packaging issue [None]
